FAERS Safety Report 23877316 (Version 1)
Quarter: 2024Q2

REPORT INFORMATION
  Report Type: Spontaneous
  Country: JP (occurrence: JP)
  Receive Date: 20240521
  Receipt Date: 20240521
  Transmission Date: 20240716
  Serious: Yes (Hospitalization)
  Sender: FDA-Public Use
  Company Number: JP-MTPC-MTPC2024-0010398

PATIENT
  Age: 73 Year
  Sex: Female

DRUGS (3)
  1. IOPAMIDOL [Suspect]
     Active Substance: IOPAMIDOL
     Indication: Scan with contrast
     Dosage: 300 MGI/ML
     Route: 065
  2. NOVASTAN [Suspect]
     Active Substance: ARGATROBAN
     Indication: Cerebral infarction
     Dosage: 60 MILLIGRAM, QD
     Route: 065
  3. EDARAVONE [Suspect]
     Active Substance: EDARAVONE
     Indication: Cerebral infarction
     Dosage: 30 MILLIGRAM, QD
     Route: 065

REACTIONS (1)
  - Contrast encephalopathy [Recovered/Resolved with Sequelae]
